FAERS Safety Report 23299797 (Version 1)
Quarter: 2023Q4

REPORT INFORMATION
  Report Type: Report from Study
  Country: ZA (occurrence: ZA)
  Receive Date: 20231215
  Receipt Date: 20231215
  Transmission Date: 20240110
  Serious: Yes (Other)
  Sender: FDA-Public Use
  Company Number: ZA-002147023-NVSC2023ZA139882

PATIENT
  Age: 48 Year
  Sex: Female

DRUGS (4)
  1. OFATUMUMAB [Suspect]
     Active Substance: OFATUMUMAB
     Indication: Multiple sclerosis
     Dosage: 20 MG, QW
     Route: 058
     Dates: start: 20230605
  2. OFATUMUMAB [Suspect]
     Active Substance: OFATUMUMAB
     Dosage: UNK
     Route: 065
     Dates: start: 20230612
  3. OFATUMUMAB [Suspect]
     Active Substance: OFATUMUMAB
     Dosage: UNK (3RD INJECTION)
     Route: 058
     Dates: start: 20230703
  4. OFATUMUMAB [Suspect]
     Active Substance: OFATUMUMAB
     Dosage: 20 MG, QMO
     Route: 058

REACTIONS (14)
  - Memory impairment [Unknown]
  - Pain [Recovered/Resolved]
  - Hypoaesthesia [Recovered/Resolved]
  - Paraesthesia [Recovered/Resolved]
  - Gait disturbance [Unknown]
  - Pain [Unknown]
  - Paraesthesia [Not Recovered/Not Resolved]
  - Dyskinesia [Unknown]
  - Pain in extremity [Not Recovered/Not Resolved]
  - Hypoaesthesia [Unknown]
  - Arthralgia [Unknown]
  - Dysstasia [Unknown]
  - Back pain [Unknown]
  - Drug ineffective [Unknown]
